FAERS Safety Report 5663522-1 (Version None)
Quarter: 2008Q1

REPORT INFORMATION
  Report Type: 
  Country: None (occurrence: None)
  Receive Date: 20080310
  Receipt Date: 20080227
  Transmission Date: 20080703
  Serious: Yes (Death)
  Sender: FDA-Public Use
  Company Number: 2008-00318

PATIENT
  Age: 58 Year
  Sex: Male
  Weight: 90 kg

DRUGS (6)
  1. VELCADE [Suspect]
     Indication: MULTIPLE MYELOMA
     Dosage: 2.80 MG, INTRAVENOUS
     Route: 042
     Dates: start: 20071116, end: 20071126
  2. RANTIDINE (RANITIDINE) [Concomitant]
  3. ALLOPURINOL [Concomitant]
  4. ACETAMINOPHEN [Concomitant]
  5. METOCLOPRAMIDE [Concomitant]
  6. ACYCLOVIR [Concomitant]

REACTIONS (4)
  - BONE MARROW FAILURE [None]
  - DISEASE PROGRESSION [None]
  - DRUG INEFFECTIVE [None]
  - RENAL IMPAIRMENT [None]
